FAERS Safety Report 10137711 (Version 1)
Quarter: 2014Q2

REPORT INFORMATION
  Report Type: Spontaneous
  Country: US (occurrence: None)
  Receive Date: 20140428
  Receipt Date: 20140428
  Transmission Date: 20141212
  Serious: No
  Sender: FDA-Public Use
  Company Number: None

PATIENT
  Age: 22 Year
  Sex: Female
  Weight: 117.94 kg

DRUGS (1)
  1. ACETAZOLAMIDE [Suspect]
     Indication: BENIGN INTRACRANIAL HYPERTENSION
     Dosage: 2 PILLS, TWICE DAILY, TAKEN BY MOUTH
     Route: 048

REACTIONS (9)
  - Headache [None]
  - Nausea [None]
  - Dizziness [None]
  - Dyspnoea [None]
  - Dysuria [None]
  - Hypoaesthesia [None]
  - Hypoaesthesia [None]
  - Hypoaesthesia oral [None]
  - Hypoaesthesia oral [None]
